FAERS Safety Report 23807489 (Version 1)
Quarter: 2024Q2

REPORT INFORMATION
  Report Type: Spontaneous
  Country: US (occurrence: US)
  Receive Date: 20240502
  Receipt Date: 20240502
  Transmission Date: 20240716
  Serious: No
  Sender: FDA-Public Use
  Company Number: US-RECKITT BENCKISER HEALTHCARE INT LIMITED-RB-087188-2024

PATIENT
  Age: 69 Year
  Sex: Female
  Weight: 95.91 kg

DRUGS (2)
  1. MUCINEX DM MAXIMUM STRENGTH [Suspect]
     Active Substance: DEXTROMETHORPHAN HYDROBROMIDE\GUAIFENESIN
     Indication: Product used for unknown indication
     Dosage: 2400 MILLIGRAM, UNK
     Route: 048
     Dates: start: 20240303
  2. IODINE [Concomitant]
     Active Substance: IODINE
     Indication: Product used for unknown indication
     Dosage: UNK
     Route: 065

REACTIONS (1)
  - Accidental overdose [Recovering/Resolving]

NARRATIVE: CASE EVENT DATE: 20240303
